FAERS Safety Report 8857440 (Version 3)
Quarter: 2013Q3

REPORT INFORMATION
  Report Type: Spontaneous
  Country: US (occurrence: US)
  Receive Date: 20121024
  Receipt Date: 20130930
  Transmission Date: 20140515
  Serious: No
  Sender: FDA-Public Use
  Company Number: US-009507513-1210USA008813

PATIENT
  Age: 23 Year
  Sex: Female
  Weight: 102.95 kg

DRUGS (1)
  1. NEXPLANON [Suspect]
     Indication: CONTRACEPTION
     Dosage: 1 IMPLANT EVERY 3 YEARS
     Route: 059
     Dates: start: 20121008

REACTIONS (7)
  - Device expulsion [Unknown]
  - Device expulsion [Unknown]
  - Device breakage [Unknown]
  - Device kink [Unknown]
  - Device difficult to use [Unknown]
  - Device deployment issue [Unknown]
  - Implant site pruritus [Unknown]
